FAERS Safety Report 12602059 (Version 3)
Quarter: 2016Q4

REPORT INFORMATION
  Report Type: Spontaneous
  Country: US (occurrence: US)
  Receive Date: 20160728
  Receipt Date: 20161003
  Transmission Date: 20170207
  Serious: No
  Sender: FDA-Public Use
  Company Number: US-PFIZER INC-2016328979

PATIENT
  Age: 82 Year
  Sex: Female
  Weight: 54.43 kg

DRUGS (8)
  1. REMICADE [Concomitant]
     Active Substance: INFLIXIMAB
     Dosage: UNK
     Dates: start: 200711
  2. GABAPENTIN. [Suspect]
     Active Substance: GABAPENTIN
     Dosage: 100 MG, UNK
  3. GABAPENTIN. [Suspect]
     Active Substance: GABAPENTIN
     Indication: NEURALGIA
     Dosage: 100 MG, 4X/DAY
  4. GABAPENTIN. [Suspect]
     Active Substance: GABAPENTIN
     Indication: CERVICAL SPINAL STENOSIS
     Dosage: 100 MG, UNK( 1AM, 2HRS)
     Dates: start: 201605
  5. REMICADE [Concomitant]
     Active Substance: INFLIXIMAB
     Indication: RHEUMATOID ARTHRITIS
     Dosage: 300 MG IN EVERY 12 WEEKS
  6. TYLENOL [Concomitant]
     Active Substance: ACETAMINOPHEN
     Indication: ARTHRITIS
     Dosage: 650 MG, UNK
  7. REMICADE [Concomitant]
     Active Substance: INFLIXIMAB
     Dosage: 200 MG, UNK(8 WEEKS)
     Dates: start: 200711
  8. REMICADE [Concomitant]
     Active Substance: INFLIXIMAB
     Dosage: 300 MG, UNK(10-12 WEEKS)
     Dates: start: 201504

REACTIONS (7)
  - Crying [Recovered/Resolved]
  - Drug intolerance [Unknown]
  - Anxiety [Recovered/Resolved]
  - Tremor [Recovered/Resolved]
  - Malaise [Recovered/Resolved]
  - Product use issue [Unknown]
  - Feeling abnormal [Recovered/Resolved]
